FAERS Safety Report 6144283-9 (Version None)
Quarter: 2009Q2

REPORT INFORMATION
  Report Type: 
  Country: None (occurrence: None)
  Receive Date: 20090406
  Receipt Date: 20090330
  Transmission Date: 20091009
  Serious: Yes (Other)
  Sender: FDA-Public Use
  Company Number: US-CELGENEUS-163-20785-09032160

PATIENT
  Sex: Female

DRUGS (5)
  1. THALOMID [Suspect]
     Indication: MULTIPLE MYELOMA
     Route: 048
     Dates: start: 20081101
  2. THALOMID [Suspect]
     Dosage: 150MG, 100MG
     Route: 048
     Dates: start: 20080901, end: 20081101
  3. THALOMID [Suspect]
     Dosage: 50MG, 150MG, 200MG
     Route: 048
     Dates: start: 20060101, end: 20080801
  4. THALOMID [Suspect]
     Route: 048
     Dates: start: 20051101, end: 20051201
  5. THALOMID [Suspect]
     Dosage: 100MG, 150MG, 50MG
     Route: 048
     Dates: start: 20050301, end: 20050901

REACTIONS (4)
  - ASTHENIA [None]
  - BALANCE DISORDER [None]
  - HIP ARTHROPLASTY [None]
  - MUSCULOSKELETAL CHEST PAIN [None]
